FAERS Safety Report 16493545 (Version 1)
Quarter: 2019Q2

REPORT INFORMATION
  Report Type: Spontaneous
  Country: SE (occurrence: SE)
  Receive Date: 20190628
  Receipt Date: 20190628
  Transmission Date: 20190711
  Serious: Yes (Hospitalization)
  Sender: FDA-Public Use
  Company Number: SE-ACCORD-135540

PATIENT
  Age: 43 Year
  Sex: Female

DRUGS (2)
  1. ATORVASTATIN/ATORVASTATIN CALCIUM [Suspect]
     Active Substance: ATORVASTATIN CALCIUM
     Indication: ANGINA UNSTABLE
     Route: 048
     Dates: start: 20190416, end: 20190502
  2. LOSARTAN. [Concomitant]
     Active Substance: LOSARTAN
     Dates: start: 20190416, end: 20190502

REACTIONS (2)
  - Liver injury [Not Recovered/Not Resolved]
  - Toxic skin eruption [Not Recovered/Not Resolved]

NARRATIVE: CASE EVENT DATE: 20190427
